FAERS Safety Report 17103442 (Version 1)
Quarter: 2019Q4

REPORT INFORMATION
  Report Type: Spontaneous
  Country: US (occurrence: US)
  Receive Date: 20191202
  Receipt Date: 20191202
  Transmission Date: 20200122
  Serious: Yes (Hospitalization)
  Sender: FDA-Public Use
  Company Number: None

PATIENT
  Age: 7 Year
  Sex: Male
  Weight: 60 kg

DRUGS (3)
  1. MIRALAX [Concomitant]
     Active Substance: POLYETHYLENE GLYCOL 3350
  2. LORATIDINE [Concomitant]
     Active Substance: LORATADINE
  3. BARIUM CONTRAST DYE [Suspect]
     Active Substance: BARIUM SULFATE
     Indication: GASTROINTESTINAL DISORDER
     Route: 058
     Dates: start: 20160418, end: 20160418

REACTIONS (5)
  - Abdominal distension [None]
  - Vasodilatation [None]
  - Product quality issue [None]
  - Sluggishness [None]
  - Malaise [None]

NARRATIVE: CASE EVENT DATE: 20160501
